FAERS Safety Report 15150477 (Version 1)
Quarter: 2018Q3

REPORT INFORMATION
  Report Type: Spontaneous
  Country: GB (occurrence: GB)
  Receive Date: 20180716
  Receipt Date: 20180716
  Transmission Date: 20181010
  Serious: Yes (Hospitalization, Other)
  Sender: FDA-Public Use
  Company Number: GB-B. BRAUN MEDICAL INC.-2052144

PATIENT
  Age: 53 Year
  Sex: Female
  Weight: 70 kg

DRUGS (6)
  1. PARACETAMOL [PARACETAMOL] [Concomitant]
  2. LIDOCAINE HYDROCHLORIDE AND DEXTROSE [Suspect]
     Active Substance: DEXTROSE\LIDOCAINE HYDROCHLORIDE
     Route: 042
     Dates: start: 20180308, end: 20180308
  3. METRONIDAZOLE. [Suspect]
     Active Substance: METRONIDAZOLE
     Route: 042
     Dates: start: 20180308, end: 20180308
  4. IBUPROFEN. [Concomitant]
     Active Substance: IBUPROFEN
  5. ROCURONIUM [Suspect]
     Active Substance: ROCURONIUM BROMIDE
     Route: 042
     Dates: start: 20180308, end: 20180308
  6. CEFUROXIME. [Suspect]
     Active Substance: CEFUROXIME
     Route: 042
     Dates: start: 20180308, end: 20180308

REACTIONS (3)
  - Hypotension [Recovered/Resolved]
  - Airway peak pressure increased [Recovered/Resolved]
  - Cyanosis [Recovered/Resolved]

NARRATIVE: CASE EVENT DATE: 20180308
